FAERS Safety Report 6470125-8 (Version None)
Quarter: 2009Q4

REPORT INFORMATION
  Report Type: 
  Country: None (occurrence: None)
  Receive Date: 20091203
  Receipt Date: 20071113
  Transmission Date: 20100525
  Serious: Yes (Hospitalization)
  Sender: FDA-Public Use
  Company Number: TR-ELI_LILLY_AND_COMPANY-TR200711005933

PATIENT
  Sex: Female

DRUGS (3)
  1. HUMALOG [Suspect]
     Indication: TYPE 2 DIABETES MELLITUS
     Dosage: 16 UNITS/MORNING, NOON AND EVENING
     Route: 058
     Dates: start: 20050201
  2. LANTUS [Concomitant]
     Dosage: 24 U, EACH EVENING
     Route: 058
     Dates: start: 20050201
  3. GLUKOFEN [Concomitant]
     Dosage: UNK, UNK
     Route: 048
     Dates: start: 19820101

REACTIONS (4)
  - BLOOD GLUCOSE DECREASED [None]
  - OEDEMA PERIPHERAL [None]
  - TOE AMPUTATION [None]
  - WEIGHT INCREASED [None]
